FAERS Safety Report 19001709 (Version 2)
Quarter: 2021Q3

REPORT INFORMATION
  Report Type: Spontaneous
  Country: US (occurrence: US)
  Receive Date: 20210312
  Receipt Date: 20210908
  Transmission Date: 20211014
  Serious: No
  Sender: FDA-Public Use
  Company Number: US-FARMAPROD-202012-1754

PATIENT
  Age: 60 Year
  Sex: Male

DRUGS (2)
  1. PFAT [Concomitant]
     Indication: NEUROTROPHIC KERATOPATHY
     Route: 047
     Dates: start: 20201111
  2. OXERVATE [Suspect]
     Active Substance: CENEGERMIN-BKBJ
     Indication: KERATITIS
     Dosage: 2?3 TIMES DAILY FOR THREE TO FOUR MONTHS
     Route: 047
     Dates: start: 20201111, end: 20210330

REACTIONS (2)
  - Eyelid pain [Recovering/Resolving]
  - Off label use [Unknown]

NARRATIVE: CASE EVENT DATE: 20201111
